FAERS Safety Report 21529417 (Version 2)
Quarter: 2024Q1

REPORT INFORMATION
  Report Type: Report from Study
  Country: EG (occurrence: EG)
  Receive Date: 20221031
  Receipt Date: 20240206
  Transmission Date: 20240410
  Serious: Yes (Other)
  Sender: FDA-Public Use
  Company Number: EG-NOVARTISPH-NVSC2022EG242656

PATIENT
  Age: 32 Year
  Sex: Female

DRUGS (13)
  1. COSENTYX [Suspect]
     Active Substance: SECUKINUMAB
     Indication: Psoriasis
     Dosage: 150 MG, QMO
     Route: 065
     Dates: start: 202110
  2. COSENTYX [Suspect]
     Active Substance: SECUKINUMAB
     Indication: Psoriatic arthropathy
  3. COSENTYX [Suspect]
     Active Substance: SECUKINUMAB
     Indication: Ankylosing spondylitis
  4. PEPZOL [Concomitant]
     Indication: Gastrointestinal disorder
     Dosage: UNK, QD
     Route: 065
     Dates: start: 202209
  5. BENFOTIAMINE\CYANOCOBALAMIN\PYRIDOXINE HYDROCHLORIDE [Concomitant]
     Active Substance: BENFOTIAMINE\CYANOCOBALAMIN\PYRIDOXINE HYDROCHLORIDE
     Indication: Vitamin B12
     Dosage: UNK, QD
     Route: 065
     Dates: start: 2022
  6. METHOTREXATE [Concomitant]
     Active Substance: METHOTREXATE
     Indication: Arthritis
     Dosage: 20 MG, QW
     Route: 065
     Dates: start: 202203
  7. METHOTREXATE [Concomitant]
     Active Substance: METHOTREXATE
     Indication: Psoriatic arthropathy
     Dosage: 80 MG, QMO
     Route: 065
     Dates: start: 202107
  8. METHOTREXATE [Concomitant]
     Active Substance: METHOTREXATE
     Indication: Arthritis
     Dosage: 80 MG, QMO
     Route: 065
     Dates: start: 202210
  9. METHOTREXATE [Concomitant]
     Active Substance: METHOTREXATE
     Dosage: 25 MG, QW
     Route: 065
     Dates: start: 202107, end: 202203
  10. GABAPENTIN [Concomitant]
     Active Substance: GABAPENTIN
     Indication: Pain
     Dosage: UNK, BID
     Route: 065
     Dates: start: 202210
  11. ETORICOXIB [Concomitant]
     Active Substance: ETORICOXIB
     Indication: Pain
     Dosage: UNK
     Route: 065
     Dates: start: 2022, end: 2022
  12. CORTISOL [Concomitant]
     Active Substance: HYDROCORTISONE
     Indication: Neuritis
     Dosage: UNK, UNKNOWN
     Route: 065
     Dates: start: 2022, end: 2022
  13. TEGRETOL [Concomitant]
     Active Substance: CARBAMAZEPINE
     Indication: Neuralgia
     Dosage: 0.5 DOSAGE FORM, QD
     Route: 065

REACTIONS (16)
  - Red blood cell sedimentation rate increased [Not Recovered/Not Resolved]
  - Psoriasis [Recovering/Resolving]
  - Disturbance in attention [Not Recovered/Not Resolved]
  - Condition aggravated [Unknown]
  - Pruritus [Recovering/Resolving]
  - Neuralgia [Not Recovered/Not Resolved]
  - Vitamin D deficiency [Recovering/Resolving]
  - Neuritis [Not Recovered/Not Resolved]
  - Acne [Not Recovered/Not Resolved]
  - Mouth ulceration [Not Recovered/Not Resolved]
  - Psoriasis [Not Recovered/Not Resolved]
  - Hepatic enzyme increased [Recovered/Resolved]
  - Dizziness [Recovered/Resolved]
  - Drug ineffective [Unknown]
  - Inappropriate schedule of product administration [Unknown]
  - Off label use [Unknown]

NARRATIVE: CASE EVENT DATE: 20211001
